FAERS Safety Report 25205683 (Version 2)
Quarter: 2025Q3

REPORT INFORMATION
  Report Type: Report from Study
  Country: TH (occurrence: TH)
  Receive Date: 20250417
  Receipt Date: 20250804
  Transmission Date: 20251021
  Serious: Yes (Hospitalization)
  Sender: ALEXION PHARMACEUTICALS
  Company Number: TH-AstraZeneca-CH-00847263A

PATIENT
  Age: 76 Year
  Sex: Male

DRUGS (2)
  1. CALQUENCE [Suspect]
     Active Substance: ACALABRUTINIB
     Indication: Chronic lymphocytic leukaemia
  2. CALQUENCE [Suspect]
     Active Substance: ACALABRUTINIB
     Indication: Nodal marginal zone B-cell lymphoma

REACTIONS (2)
  - Skin infection [Unknown]
  - Haematological infection [Unknown]

NARRATIVE: CASE EVENT DATE: 20250317
